FAERS Safety Report 16098560 (Version 1)
Quarter: 2019Q1

REPORT INFORMATION
  Report Type: Spontaneous
  Country: TR (occurrence: TR)
  Receive Date: 20190321
  Receipt Date: 20190321
  Transmission Date: 20190418
  Serious: Yes (Death, Other)
  Sender: FDA-Public Use
  Company Number: TR-ASTELLAS-2019US011866

PATIENT
  Age: 64 Year
  Sex: Male

DRUGS (2)
  1. AMPHOTERICIN B, LIPOSOME [Suspect]
     Active Substance: AMPHOTERICIN B
     Indication: MUCORMYCOSIS
     Route: 041
  2. POSACONAZOLE [Suspect]
     Active Substance: POSACONAZOLE
     Indication: MUCORMYCOSIS
     Route: 041

REACTIONS (1)
  - Drug ineffective [Fatal]
